FAERS Safety Report 19115662 (Version 3)
Quarter: 2022Q1

REPORT INFORMATION
  Report Type: Other
  Country: CA (occurrence: CA)
  Receive Date: 20210409
  Receipt Date: 20220224
  Transmission Date: 20220424
  Serious: Yes (Other)
  Sender: FDA-Public Use
  Company Number: CA-SA-SAC20210405000944

PATIENT
  Sex: Male

DRUGS (6)
  1. FLOMAX [Suspect]
     Active Substance: TAMSULOSIN HYDROCHLORIDE
     Indication: Lower urinary tract symptoms
     Dosage: 0.4 MG, QD
     Route: 065
  2. FLOMAX [Suspect]
     Active Substance: TAMSULOSIN HYDROCHLORIDE
     Indication: Benign prostatic hyperplasia
     Dosage: UNK UNK, UNKNOWN FREQ.
     Route: 065
  3. FLOMAX [Suspect]
     Active Substance: TAMSULOSIN HYDROCHLORIDE
     Indication: Hypertonic bladder
  4. MYRBETRIQ [Suspect]
     Active Substance: MIRABEGRON
     Indication: Hypertonic bladder
     Dosage: 50 MG, QD
     Route: 065
  5. MYRBETRIQ [Suspect]
     Active Substance: MIRABEGRON
     Indication: Lower urinary tract symptoms
     Dosage: UNK UNK, UNKNOWN FREQ.
     Route: 065
  6. MYRBETRIQ [Suspect]
     Active Substance: MIRABEGRON
     Indication: Benign prostatic hyperplasia
     Dosage: 25 MG, QD
     Route: 065

REACTIONS (3)
  - Acute myocardial infarction [Unknown]
  - Cerebral infarction [Unknown]
  - Product use in unapproved indication [Unknown]
